FAERS Safety Report 10206005 (Version 1)
Quarter: 2014Q2

REPORT INFORMATION
  Report Type: Spontaneous
  Country: US (occurrence: None)
  Receive Date: 20140527
  Receipt Date: 20140527
  Transmission Date: 20141212
  Serious: Yes (Hospitalization)
  Sender: FDA-Public Use
  Company Number: None

PATIENT
  Age: 61 Year
  Sex: Female
  Weight: 55.24 kg

DRUGS (22)
  1. SOFOSBUVIR [Suspect]
     Indication: HEPATITIS C
     Route: 048
     Dates: start: 20140310
  2. RIBAVIRIN [Suspect]
     Indication: HEPATITIS C
     Route: 048
     Dates: start: 20140310, end: 20140415
  3. ALBUTEROL [Concomitant]
  4. AMLODIPINE [Concomitant]
  5. ATOVAQUONE [Concomitant]
  6. BARACLUDE [Concomitant]
  7. CIPRO [Concomitant]
  8. COUMADIN [Concomitant]
  9. GABAPENTIN [Concomitant]
  10. HECORIA [Concomitant]
  11. HYDROMORPHONE [Concomitant]
  12. LACTOBACILLUS ACIDOPHILUS [Concomitant]
  13. MAGNESIUM OXIDE [Concomitant]
  14. METOPROLOL [Concomitant]
  15. ONDANSETRON [Concomitant]
  16. PREDNISONE [Concomitant]
  17. PROTONIX [Concomitant]
  18. QUETIAPINE [Concomitant]
  19. RIBAVIRIN [Concomitant]
  20. SIMETHICONE [Concomitant]
  21. TEMAZEPAM [Concomitant]
  22. VALGANCICLOVIR [Concomitant]

REACTIONS (6)
  - Nausea [None]
  - Dehydration [None]
  - Vomiting [None]
  - Diarrhoea [None]
  - Renal failure acute [None]
  - Norovirus test positive [None]
